FAERS Safety Report 8431648-5 (Version None)
Quarter: 2012Q2

REPORT INFORMATION
  Report Type: 
  Country: None (occurrence: None)
  Receive Date: 20120613
  Receipt Date: 20120119
  Transmission Date: 20120825
  Serious: No
  Sender: FDA-Public Use
  Company Number: US-GLAXOSMITHKLINE-A0962217A

PATIENT
  Age: 41 Year
  Sex: Female

DRUGS (2)
  1. SUPPLEMENT [Concomitant]
  2. TREXIMET [Suspect]
     Indication: MIGRAINE
     Dosage: 1TAB SINGLE DOSE
     Route: 048
     Dates: start: 20120118, end: 20120119

REACTIONS (1)
  - DRUG INEFFECTIVE [None]
